FAERS Safety Report 23055601 (Version 2)
Quarter: 2023Q4

REPORT INFORMATION
  Report Type: Spontaneous
  Country: US (occurrence: US)
  Receive Date: 20231011
  Receipt Date: 20231204
  Transmission Date: 20240109
  Serious: Yes (Hospitalization)
  Sender: FDA-Public Use
  Company Number: US-ELI_LILLY_AND_COMPANY-US202310003419

PATIENT
  Age: 72 Year
  Sex: Male

DRUGS (2)
  1. JAYPIRCA [Suspect]
     Active Substance: PIRTOBRUTINIB
     Indication: Mantle cell lymphoma
     Dosage: 100 MG, UNKNOWN
     Route: 065
  2. JAYPIRCA [Suspect]
     Active Substance: PIRTOBRUTINIB
     Indication: Lymphocyte adoptive therapy
     Dosage: 100 MG, UNKNOWN
     Route: 065

REACTIONS (2)
  - Back pain [Unknown]
  - Stomatitis [Recovered/Resolved]
